FAERS Safety Report 9633370 (Version 1)
Quarter: 2013Q4

REPORT INFORMATION
  Report Type: Spontaneous
  Country: US (occurrence: US)
  Receive Date: 20131021
  Receipt Date: 20131021
  Transmission Date: 20140711
  Serious: No
  Sender: FDA-Public Use
  Company Number: US-BRISTOL-MYERS SQUIBB COMPANY-19043033

PATIENT
  Age: 92 Year
  Sex: Female

DRUGS (3)
  1. YERVOY [Suspect]
     Indication: METASTATIC MALIGNANT MELANOMA
     Route: 042
     Dates: start: 20130612
  2. PROCHLORPERAZINE [Concomitant]
  3. ZOFRAN [Concomitant]

REACTIONS (4)
  - Nausea [Recovered/Resolved]
  - Lymphadenopathy [Unknown]
  - Local swelling [Unknown]
  - Vision blurred [Unknown]
